FAERS Safety Report 15330240 (Version 2)
Quarter: 2018Q3

REPORT INFORMATION
  Report Type: Spontaneous
  Country: JP (occurrence: JP)
  Receive Date: 20180829
  Receipt Date: 20180906
  Transmission Date: 20181010
  Serious: Yes (Hospitalization, Other)
  Sender: FDA-Public Use
  Company Number: JP-PFIZER INC-2018346444

PATIENT

DRUGS (6)
  1. WARFARIN [Concomitant]
     Active Substance: WARFARIN
  2. RISPERIDONE. [Concomitant]
     Active Substance: RISPERIDONE
  3. JZOLOFT [Suspect]
     Active Substance: SERTRALINE HYDROCHLORIDE
     Dosage: UNK
  4. FAMOTIDINE. [Concomitant]
     Active Substance: FAMOTIDINE
  5. CANDESARTAN. [Concomitant]
     Active Substance: CANDESARTAN
  6. AZOSEMIDE [Concomitant]
     Active Substance: AZOSEMIDE

REACTIONS (2)
  - Serotonin syndrome [Unknown]
  - Urinary retention [Unknown]
